FAERS Safety Report 6265179-8 (Version None)
Quarter: 2009Q3

REPORT INFORMATION
  Report Type: 
  Country: None (occurrence: None)
  Receive Date: 20090708
  Receipt Date: 20090629
  Transmission Date: 20100115
  Serious: Yes (Hospitalization)
  Sender: FDA-Public Use
  Company Number: GXKR2009SE07473

PATIENT
  Age: 67 Year
  Sex: Female

DRUGS (3)
  1. FOLINIC ACID (NGX) (FOLINIC ACID) UNKNOWN [Suspect]
     Indication: GASTROINTESTINAL CANCER METASTATIC
     Dosage: ON TWO CONSECUTIVE DAYS EVERY 2 WEEKS
  2. GEMCITABINE [Suspect]
     Indication: GASTROINTESTINAL CANCER METASTATIC
     Dosage: ON TWO CONSECUTIVE DAYS EVERY 2 WEEKS
  3. FLUOROURACIL [Suspect]
     Indication: GASTROINTESTINAL CANCER METASTATIC
     Dosage: ON TWO CONSECUTIVE DAYS EVERY 2 WEEKS

REACTIONS (5)
  - EATING DISORDER [None]
  - INFECTION [None]
  - NAUSEA [None]
  - OLFACTORY NERVE DISORDER [None]
  - PAROSMIA [None]
